FAERS Safety Report 25943438 (Version 1)
Quarter: 2025Q4

REPORT INFORMATION
  Report Type: Spontaneous
  Country: US (occurrence: US)
  Receive Date: 20251021
  Receipt Date: 20251021
  Transmission Date: 20260118
  Serious: Yes (Other)
  Sender: SOLENO THERAPEUTICS
  Company Number: US-SOLENO THERAPEUTICS, INC.-SOL2025000498

PATIENT
  Age: 28 Year
  Sex: Male
  Weight: 167.8 kg

DRUGS (7)
  1. VYKAT XR [Suspect]
     Active Substance: DIAZOXIDE CHOLINE
     Indication: Product used for unknown indication
     Dosage: UNK, QD
     Route: 065
     Dates: start: 20250712, end: 2025
  2. VYKAT XR [Suspect]
     Active Substance: DIAZOXIDE CHOLINE
     Dosage: 450 MILLIGRAM, QD (THREE 150 MG TABLETS BY MOUTH ONCE DAILY)
     Route: 048
     Dates: start: 2025, end: 2025
  3. VYKAT XR [Suspect]
     Active Substance: DIAZOXIDE CHOLINE
     Dosage: 525 MILLIGRAM, QD
     Route: 048
     Dates: start: 202508, end: 2025
  4. CITALOPRAM [Concomitant]
     Active Substance: CITALOPRAM
     Indication: Product used for unknown indication
     Route: 065
  5. TOPIRAMATE [Concomitant]
     Active Substance: TOPIRAMATE
     Indication: Product used for unknown indication
     Route: 065
  6. ZEPBOUND [Concomitant]
     Active Substance: TIRZEPATIDE
     Indication: Product used for unknown indication
     Route: 065
  7. VITAMINS [Concomitant]
     Active Substance: VITAMINS
     Indication: Product used for unknown indication
     Route: 065

REACTIONS (3)
  - Pulmonary oedema [Recovered/Resolved]
  - Oedema [Not Recovered/Not Resolved]
  - Weight increased [Not Recovered/Not Resolved]

NARRATIVE: CASE EVENT DATE: 20250830
